FAERS Safety Report 16161487 (Version 1)
Quarter: 2019Q2

REPORT INFORMATION
  Report Type: Spontaneous
  Country: CN (occurrence: CN)
  Receive Date: 20190405
  Receipt Date: 20190405
  Transmission Date: 20190711
  Serious: Yes (Other)
  Sender: FDA-Public Use
  Company Number: CN-ALKEM LABORATORIES LIMITED-CN-ALKEM-2019-02258

PATIENT
  Age: 43 Year
  Sex: Female

DRUGS (22)
  1. TAZOBACTAM SODIUM [Suspect]
     Active Substance: TAZOBACTAM SODIUM
     Indication: SOFT TISSUE INFECTION
     Dosage: UNK
     Route: 065
  2. TAZOBACTAM SODIUM [Suspect]
     Active Substance: TAZOBACTAM SODIUM
     Indication: PYREXIA
  3. LEVOFLOXACIN. [Suspect]
     Active Substance: LEVOFLOXACIN
     Indication: PYREXIA
  4. ITRACONAZOLE. [Suspect]
     Active Substance: ITRACONAZOLE
     Indication: SOFT TISSUE INFECTION
     Dosage: UNK
     Route: 065
  5. PIPERACILLIN SODIUM [Suspect]
     Active Substance: PIPERACILLIN SODIUM
     Indication: SOFT TISSUE INFECTION
     Dosage: UNK
     Route: 065
  6. IMIPENEM [Suspect]
     Active Substance: IMIPENEM
     Indication: PYREXIA
  7. CLINDAMYCIN. [Suspect]
     Active Substance: CLINDAMYCIN
     Indication: PYREXIA
  8. AMIKACIN. [Suspect]
     Active Substance: AMIKACIN
     Indication: SOFT TISSUE INFECTION
     Dosage: UNK
     Route: 065
  9. VORICONAZOLE. [Suspect]
     Active Substance: VORICONAZOLE
     Indication: PYREXIA
  10. LINEZOLID. [Suspect]
     Active Substance: LINEZOLID
     Indication: SOFT TISSUE INFECTION
     Dosage: UNK
     Route: 065
  11. TEICOPLANIN [Suspect]
     Active Substance: TEICOPLANIN
     Indication: SOFT TISSUE INFECTION
     Dosage: UNK
     Route: 065
  12. TEICOPLANIN [Suspect]
     Active Substance: TEICOPLANIN
     Indication: PYREXIA
  13. LEVOFLOXACIN. [Suspect]
     Active Substance: LEVOFLOXACIN
     Indication: SOFT TISSUE INFECTION
     Dosage: UNK
     Route: 065
  14. LINEZOLID. [Suspect]
     Active Substance: LINEZOLID
     Indication: PYREXIA
  15. PIPERACILLIN SODIUM [Suspect]
     Active Substance: PIPERACILLIN SODIUM
     Indication: PYREXIA
  16. MOXIFLOXACIN. [Suspect]
     Active Substance: MOXIFLOXACIN
     Indication: SOFT TISSUE INFECTION
     Dosage: UNK
     Route: 065
  17. IMIPENEM [Suspect]
     Active Substance: IMIPENEM
     Indication: SOFT TISSUE INFECTION
     Dosage: UNK
     Route: 065
  18. MOXIFLOXACIN. [Suspect]
     Active Substance: MOXIFLOXACIN
     Indication: PYREXIA
  19. VORICONAZOLE. [Suspect]
     Active Substance: VORICONAZOLE
     Indication: SOFT TISSUE INFECTION
     Dosage: UNK
     Route: 065
  20. CLINDAMYCIN. [Suspect]
     Active Substance: CLINDAMYCIN
     Indication: SOFT TISSUE INFECTION
     Dosage: UNK
     Route: 065
  21. ITRACONAZOLE. [Suspect]
     Active Substance: ITRACONAZOLE
     Indication: PYREXIA
  22. AMIKACIN. [Suspect]
     Active Substance: AMIKACIN
     Indication: PYREXIA

REACTIONS (1)
  - Drug ineffective [Unknown]
